FAERS Safety Report 23874993 (Version 3)
Quarter: 2024Q4

REPORT INFORMATION
  Report Type: Report from Study
  Country: US (occurrence: US)
  Receive Date: 20240520
  Receipt Date: 20241021
  Transmission Date: 20250115
  Serious: Yes (Other)
  Sender: ABBVIE
  Company Number: US-ABBVIE-5765261

PATIENT
  Sex: Male

DRUGS (2)
  1. RINVOQ [Suspect]
     Active Substance: UPADACITINIB
     Indication: Psoriasis
     Dosage: FORM STRENGTH: 30 MG? TAKE 1 TABLET BY MOUTH
     Route: 048
     Dates: start: 20240412
  2. RINVOQ [Suspect]
     Active Substance: UPADACITINIB
     Indication: Psoriasis
     Dosage: FORM STRENGTH: 15 MG? TAKE 1 TABLET BY MOUTH
     Route: 048
     Dates: start: 20231007, end: 20240326

REACTIONS (11)
  - Acrochordon [Recovered/Resolved]
  - Skin discharge [Recovered/Resolved]
  - Prostatitis [Not Recovered/Not Resolved]
  - Dyspareunia [Unknown]
  - Post procedural infection [Recovered/Resolved]
  - Skin exfoliation [Recovered/Resolved]
  - Dry skin [Recovered/Resolved]
  - Dysuria [Recovering/Resolving]
  - Skin odour abnormal [Recovered/Resolved]
  - Dry skin [Unknown]
  - Skin exfoliation [Unknown]

NARRATIVE: CASE EVENT DATE: 20240101
